FAERS Safety Report 11149668 (Version 3)
Quarter: 2015Q3

REPORT INFORMATION
  Report Type: Spontaneous
  Country: DE (occurrence: DE)
  Receive Date: 20150529
  Receipt Date: 20150730
  Transmission Date: 20151125
  Serious: Yes (Other)
  Sender: FDA-Public Use
  Company Number: DE-BAXTER-2015BAX028399

PATIENT
  Sex: Male

DRUGS (7)
  1. BLEOMYCIN [Suspect]
     Active Substance: BLEOMYCIN SULFATE
     Indication: HODGKIN^S DISEASE
     Dosage: 7 COURSES
     Route: 065
     Dates: end: 201207
  2. ETOPOSID [Suspect]
     Active Substance: ETOPOSIDE
     Indication: HODGKIN^S DISEASE
     Dosage: 7 COURSES
     Route: 065
     Dates: end: 201207
  3. VINCRSITIN [Suspect]
     Active Substance: VINCRISTINE
     Indication: HODGKIN^S DISEASE
     Dosage: 7 COURSES
     Route: 065
     Dates: end: 201207
  4. ENDOXAN 1G [Suspect]
     Active Substance: CYCLOPHOSPHAMIDE
     Indication: HODGKIN^S DISEASE
     Dosage: 7 COURSES
     Route: 065
     Dates: end: 201207
  5. PREDNISOLON [Suspect]
     Active Substance: PREDNISOLONE
     Indication: HODGKIN^S DISEASE
     Dosage: 7 COURSES
     Route: 065
     Dates: end: 201207
  6. NATULAN [Suspect]
     Active Substance: PROCARBAZINE HYDROCHLORIDE
     Indication: HODGKIN^S DISEASE
     Dosage: 7 COURSES
     Route: 065
     Dates: end: 201207
  7. ADRIAMYCIN [Suspect]
     Active Substance: DOXORUBICIN HYDROCHLORIDE
     Indication: HODGKIN^S DISEASE
     Dosage: 7 COURSES
     Route: 065
     Dates: end: 201207

REACTIONS (1)
  - Exposure via father [Recovered/Resolved]
